FAERS Safety Report 10921182 (Version 1)
Quarter: 2015Q1

REPORT INFORMATION
  Report Type: Report from Study
  Country: HU (occurrence: HU)
  Receive Date: 20150317
  Receipt Date: 20150317
  Transmission Date: 20150721
  Serious: Yes (Death)
  Sender: FDA-Public Use
  Company Number: US-ASTRAZENECA-2015SE23757

PATIENT
  Age: 127 Day
  Sex: Male

DRUGS (1)
  1. SYNAGIS [Suspect]
     Active Substance: PALIVIZUMAB
     Indication: ANTIVIRAL PROPHYLAXIS
     Dosage: SYNAGIS WAS GIVEN BASED ON BODY WEIGHT MONTHLY
     Route: 030
     Dates: start: 20150113, end: 20150211

REACTIONS (1)
  - Death [Fatal]

NARRATIVE: CASE EVENT DATE: 20150309
